FAERS Safety Report 21115939 (Version 3)
Quarter: 2022Q4

REPORT INFORMATION
  Report Type: Spontaneous
  Country: US (occurrence: US)
  Receive Date: 20220721
  Receipt Date: 20221025
  Transmission Date: 20230113
  Serious: No
  Sender: FDA-Public Use
  Company Number: US-SA-SAC20220719001155

PATIENT
  Age: 58 Year
  Sex: Female

DRUGS (1)
  1. DUPIXENT [Suspect]
     Active Substance: DUPILUMAB
     Dosage: 300 MG; FREQUENCY : OTHER
     Route: 058
     Dates: start: 202207

REACTIONS (4)
  - Injection site rash [Recovered/Resolved]
  - Injection site irritation [Unknown]
  - Injection site reaction [Unknown]
  - Surgery [Unknown]

NARRATIVE: CASE EVENT DATE: 20220718
